FAERS Safety Report 9887667 (Version 1)
Quarter: 2014Q1

REPORT INFORMATION
  Report Type: Spontaneous
  Country: FR (occurrence: FR)
  Receive Date: 20140211
  Receipt Date: 20140211
  Transmission Date: 20141002
  Serious: Yes (Hospitalization)
  Sender: FDA-Public Use
  Company Number: FR-JNJFOC-20140204938

PATIENT
  Age: 79 Year
  Sex: Female

DRUGS (3)
  1. IXPRIM [Suspect]
     Indication: PAIN
     Route: 048
  2. LEXOMIL [Suspect]
     Indication: ANXIETY
     Route: 048
  3. ACUPAN [Suspect]
     Indication: PAIN
     Route: 042

REACTIONS (3)
  - Femoral neck fracture [Recovered/Resolved with Sequelae]
  - Fall [Recovered/Resolved]
  - Overdose [Unknown]
